FAERS Safety Report 23660003 (Version 1)
Quarter: 2024Q1

REPORT INFORMATION
  Report Type: Spontaneous
  Country: US (occurrence: US)
  Receive Date: 20240321
  Receipt Date: 20240321
  Transmission Date: 20240409
  Serious: No
  Sender: FDA-Public Use
  Company Number: US-MYLANLABS-2024M1023559

PATIENT
  Age: 53 Year
  Sex: Female
  Weight: 67.59 kg

DRUGS (2)
  1. TYRVAYA [Suspect]
     Active Substance: VARENICLINE TARTRATE
     Indication: Dry eye
     Dosage: UNK, QD (1 SPRAY IN EACH NOSTRIL)
     Route: 045
     Dates: start: 202303
  2. TYRVAYA [Suspect]
     Active Substance: VARENICLINE TARTRATE
     Dosage: UNK, QD (1 SPRAY IN EACH NOSTRIL)
     Route: 045
     Dates: start: 20240304

REACTIONS (5)
  - Instillation site pain [Unknown]
  - Rhinorrhoea [Unknown]
  - Flushing [Unknown]
  - Instillation site irritation [Unknown]
  - Off label use [Unknown]

NARRATIVE: CASE EVENT DATE: 20230301
